FAERS Safety Report 6643628-0 (Version None)
Quarter: 2010Q1

REPORT INFORMATION
  Report Type: 
  Country: None (occurrence: None)
  Receive Date: 20100320
  Receipt Date: 20100311
  Transmission Date: 20100710
  Serious: Yes (Death)
  Sender: FDA-Public Use
  Company Number: BR-JNJFOC-20100302110

PATIENT
  Sex: Male

DRUGS (5)
  1. EPREX [Suspect]
     Indication: ANAEMIA OF MALIGNANT DISEASE
  2. CAELYX [Suspect]
     Indication: MULTIPLE MYELOMA
     Route: 042
  3. DEXAMETHASONE [Suspect]
     Indication: MULTIPLE MYELOMA
  4. VELCADE [Suspect]
     Indication: MULTIPLE MYELOMA
  5. RADIATION THERAPY NOS [Suspect]
     Indication: MULTIPLE MYELOMA

REACTIONS (5)
  - BONE PAIN [None]
  - DEATH [None]
  - INTERSTITIAL LUNG DISEASE [None]
  - PNEUMONIA [None]
  - SEPSIS [None]
